FAERS Safety Report 20324356 (Version 3)
Quarter: 2022Q1

REPORT INFORMATION
  Report Type: Spontaneous
  Country: NL (occurrence: NL)
  Receive Date: 20220111
  Receipt Date: 20220331
  Transmission Date: 20220423
  Serious: Yes (Other)
  Sender: FDA-Public Use
  Company Number: NL-MYLANLABS-2022M1001838

PATIENT
  Age: 103 Year
  Sex: Female
  Weight: 86 kg

DRUGS (3)
  1. EPIPEN [Suspect]
     Active Substance: EPINEPHRINE
     Indication: Swelling
     Dosage: 300 MICROGRAM, PRN
  2. EPIPEN [Suspect]
     Active Substance: EPINEPHRINE
     Indication: Swollen tongue
  3. EPIPEN [Suspect]
     Active Substance: EPINEPHRINE
     Indication: Dyspnoea

REACTIONS (1)
  - Device failure [Not Recovered/Not Resolved]

NARRATIVE: CASE EVENT DATE: 20220106
